FAERS Safety Report 12678552 (Version 3)
Quarter: 2019Q2

REPORT INFORMATION
  Report Type: Spontaneous
  Country: US (occurrence: US)
  Receive Date: 20160823
  Receipt Date: 20190426
  Transmission Date: 20190711
  Serious: No
  Sender: FDA-Public Use
  Company Number: US-PFIZER INC-2016395239

PATIENT
  Sex: Female

DRUGS (12)
  1. NAPROSYN [Suspect]
     Active Substance: NAPROXEN
     Dosage: UNK
  2. AMOXICILLIN. [Suspect]
     Active Substance: AMOXICILLIN
     Dosage: UNK
  3. MACRODANTIN [Suspect]
     Active Substance: NITROFURANTOIN
     Dosage: UNK
  4. CELEBREX [Suspect]
     Active Substance: CELECOXIB
     Dosage: UNK
  5. TETRACYCLINE [Suspect]
     Active Substance: TETRACYCLINE
     Dosage: UNK
  6. NAPROXEN. [Suspect]
     Active Substance: NAPROXEN
     Dosage: UNK
  7. CECLOR [Suspect]
     Active Substance: CEFACLOR
     Dosage: UNK
  8. CEFACLOR. [Suspect]
     Active Substance: CEFACLOR
     Dosage: UNK
  9. AMPICILLIN SODIUM. [Suspect]
     Active Substance: AMPICILLIN SODIUM
     Dosage: UNK
  10. DIPHENHYDRAMINE HCL [Suspect]
     Active Substance: DIPHENHYDRAMINE HYDROCHLORIDE
     Dosage: UNK
  11. VIOXX [Suspect]
     Active Substance: ROFECOXIB
     Dosage: UNK
  12. CIPRO HC [Suspect]
     Active Substance: CIPROFLOXACIN HYDROCHLORIDE\HYDROCORTISONE
     Dosage: UNK

REACTIONS (1)
  - Drug hypersensitivity [Unknown]
